FAERS Safety Report 8801685 (Version 2)
Quarter: 2015Q2

REPORT INFORMATION
  Report Type: Report from Study
  Country: US (occurrence: US)
  Receive Date: 20120921
  Receipt Date: 20150618
  Transmission Date: 20150821
  Serious: Yes (Death)
  Sender: FDA-Public Use
  Company Number: US-ROCHE-1125984

PATIENT
  Sex: Male

DRUGS (4)
  1. TARCEVA [Suspect]
     Active Substance: ERLOTINIB HYDROCHLORIDE
     Indication: PRODUCT USED FOR UNKNOWN INDICATION
     Route: 048
  2. AVASTIN [Suspect]
     Active Substance: BEVACIZUMAB
     Indication: GALLBLADDER CANCER
     Route: 065
  3. AVASTIN [Suspect]
     Active Substance: BEVACIZUMAB
     Route: 065
  4. HERCEPTIN [Suspect]
     Active Substance: TRASTUZUMAB
     Indication: GALLBLADDER CANCER
     Route: 042
     Dates: start: 20061128

REACTIONS (3)
  - Asthenia [Unknown]
  - Death [Fatal]
  - Off label use [Unknown]
